FAERS Safety Report 6321699-9 (Version None)
Quarter: 2009Q3

REPORT INFORMATION
  Report Type: 
  Country: None (occurrence: None)
  Receive Date: 20090821
  Receipt Date: 20090821
  Transmission Date: 20100115
  Serious: Yes (Other)
  Sender: FDA-Public Use
  Company Number: None

PATIENT
  Sex: Female
  Weight: 88.4514 kg

DRUGS (3)
  1. ACTONEL [Suspect]
     Indication: OSTEOPENIA
     Dosage: 150 MG 1/MO ORAL
     Route: 048
     Dates: start: 20081101
  2. ACTONEL [Suspect]
     Indication: OSTEOPENIA
     Dosage: 150 MG 1/MO ORAL
     Route: 048
     Dates: start: 20081201
  3. ACTONEL [Suspect]
     Indication: OSTEOPENIA
     Dosage: 150 MG 1/MO ORAL
     Route: 048
     Dates: start: 20090301

REACTIONS (3)
  - DIARRHOEA [None]
  - NONSPECIFIC REACTION [None]
  - VOMITING PROJECTILE [None]
